FAERS Safety Report 22138389 (Version 1)
Quarter: 2023Q1

REPORT INFORMATION
  Report Type: Spontaneous
  Country: US (occurrence: US)
  Receive Date: 20230326
  Receipt Date: 20230326
  Transmission Date: 20230417
  Serious: Yes (Other)
  Sender: FDA-Public Use
  Company Number: US-TEVA-2023-US-2868360

PATIENT
  Age: 69 Year
  Sex: Female

DRUGS (1)
  1. ALPRAZOLAM [Suspect]
     Active Substance: ALPRAZOLAM
     Indication: Product used for unknown indication
     Route: 065
     Dates: start: 1977

REACTIONS (11)
  - Deafness [Unknown]
  - Near death experience [Unknown]
  - Presyncope [Unknown]
  - Dyspnoea [Unknown]
  - Anxiety [Unknown]
  - Product packaging issue [Unknown]
  - Fear [Unknown]
  - Gait inability [Unknown]
  - Hypoacusis [Unknown]
  - Tremor [Unknown]
  - Accidental exposure to product [Unknown]
